FAERS Safety Report 25080186 (Version 1)
Quarter: 2025Q1

REPORT INFORMATION
  Report Type: Spontaneous
  Country: US (occurrence: US)
  Receive Date: 20250314
  Receipt Date: 20250314
  Transmission Date: 20250409
  Serious: No
  Sender: CIPHER
  Company Number: US-PARAPRO LLC-2024PP000002

PATIENT
  Age: 67 Year
  Sex: Female

DRUGS (1)
  1. NATROBA [Suspect]
     Active Substance: SPINOSAD
     Indication: Lice infestation
     Route: 061
     Dates: start: 2023

REACTIONS (4)
  - Condition aggravated [Not Recovered/Not Resolved]
  - Product quality issue [Unknown]
  - Intentional product use issue [Unknown]
  - Drug ineffective [Unknown]
